FAERS Safety Report 24872326 (Version 1)
Quarter: 2025Q1

REPORT INFORMATION
  Report Type: Spontaneous
  Country: JP (occurrence: JP)
  Receive Date: 20250122
  Receipt Date: 20250122
  Transmission Date: 20250408
  Serious: Yes (Death, Other)
  Sender: UCB
  Company Number: JP-UCBJ-CD202500682UCBPHAPROD

PATIENT
  Age: 5 Year
  Sex: Female

DRUGS (1)
  1. LEVETIRACETAM [Suspect]
     Active Substance: LEVETIRACETAM
     Indication: Epilepsy
     Route: 048

REACTIONS (10)
  - Subarachnoid haemorrhage [Fatal]
  - Hydrocephalus [Fatal]
  - Carotid artery occlusion [Unknown]
  - Cerebral infarction [Unknown]
  - Depressed level of consciousness [Unknown]
  - Platelet count increased [Unknown]
  - Thrombectomy [Unknown]
  - Surgery [Unknown]
  - Ventricular drainage [Unknown]
  - Drug ineffective [Unknown]
